FAERS Safety Report 23080377 (Version 2)
Quarter: 2023Q4

REPORT INFORMATION
  Report Type: Report from Study
  Country: US (occurrence: US)
  Receive Date: 20231018
  Receipt Date: 20231207
  Transmission Date: 20240110
  Serious: Yes (Other)
  Sender: FDA-Public Use
  Company Number: US-JNJFOC-20231029669

PATIENT
  Age: 62 Year
  Sex: Female
  Weight: 56 kg

DRUGS (27)
  1. TECLISTAMAB [Suspect]
     Active Substance: TECLISTAMAB
     Indication: Plasma cell myeloma refractory
     Route: 058
     Dates: start: 20220920, end: 20220922
  2. TECLISTAMAB [Suspect]
     Active Substance: TECLISTAMAB
     Dosage: MOST RECENT DOSE 06-SEP-2023
     Route: 058
     Dates: start: 20220926
  3. DARATUMUMAB [Suspect]
     Active Substance: DARATUMUMAB
     Indication: Plasma cell myeloma refractory
     Dosage: MOST RECENT DOSE: 06-SEP-2023
     Route: 058
     Dates: start: 20220919, end: 20230906
  4. METFORMIN [Concomitant]
     Active Substance: METFORMIN HYDROCHLORIDE
     Indication: Type 2 diabetes mellitus
     Dosage: 1000 (NO UNIT DOSE)
     Route: 048
     Dates: start: 20200511, end: 20231004
  5. VITAMIN D3 [Concomitant]
     Active Substance: CHOLECALCIFEROL
     Indication: Nutritional supplementation
     Dosage: 400 (NO UNIT DOSE)
     Route: 048
     Dates: start: 20210128
  6. ASPIRIN [Concomitant]
     Active Substance: ASPIRIN
     Indication: Pain prophylaxis
     Dosage: 81 (NO UNIT DOSE)
     Route: 048
     Dates: start: 20210210
  7. ACYCLOVIR [Concomitant]
     Active Substance: ACYCLOVIR
     Indication: Antiviral prophylaxis
     Dosage: 800 (NO UNIT DOSE)
     Route: 048
     Dates: start: 20211021
  8. LISINOPRIL [Concomitant]
     Active Substance: LISINOPRIL
     Indication: Hypertension
     Dosage: 10 (NO UNIT DOSE)
     Route: 048
     Dates: start: 20220104
  9. METOPROLOL SUCCINATE [Concomitant]
     Active Substance: METOPROLOL SUCCINATE
     Indication: Hypertension
     Dosage: 25 (NO UNIT DOSE)
     Route: 048
     Dates: start: 20220525
  10. REQUIP [Concomitant]
     Active Substance: ROPINIROLE HYDROCHLORIDE
     Indication: Restless legs syndrome
     Dosage: 1 (NO UNIT DOSE)
     Route: 048
     Dates: start: 20220808
  11. PANTOPRAZOLE [Concomitant]
     Active Substance: PANTOPRAZOLE
     Indication: Gastrooesophageal reflux disease
     Dosage: 20 (NO UNIT DOSE)
     Route: 048
     Dates: start: 20220816
  12. NARCAN [Concomitant]
     Active Substance: NALOXONE HYDROCHLORIDE
     Indication: Prophylaxis
     Dosage: 4 (NO UNIT DOSE)
     Route: 045
     Dates: start: 20220829
  13. TRAMADOL [Concomitant]
     Active Substance: TRAMADOL\TRAMADOL HYDROCHLORIDE
     Indication: Pain prophylaxis
     Dosage: 50 (NO UNIT DOSE)
     Route: 048
     Dates: start: 20220829
  14. DIPHENHYDRAMINE [Concomitant]
     Active Substance: DIPHENHYDRAMINE
     Indication: Insomnia
     Dosage: 25 (NO UNIT DOSE)
     Route: 048
     Dates: start: 20220920
  15. LEVOFLOXACIN [Concomitant]
     Active Substance: LEVOFLOXACIN
     Indication: Pneumonia
     Dosage: 750 (NO UNIT DOSE)
     Route: 048
     Dates: start: 20221116
  16. GUAIFENESIN [Concomitant]
     Active Substance: GUAIFENESIN
     Indication: Cough
     Dosage: 400 (NO UNIT DOSE)
     Route: 048
     Dates: start: 20230125
  17. POTASSIUM CHLORIDE [Concomitant]
     Active Substance: POTASSIUM CHLORIDE
     Indication: Hypokalaemia
     Dosage: 20 (NO UNIT DOSE)
     Route: 048
     Dates: start: 20230809
  18. ATORVASTATIN [Concomitant]
     Active Substance: ATORVASTATIN
     Indication: Type V hyperlipidaemia
     Dosage: 20 (NO UNIT DOSE)
     Route: 048
     Dates: start: 20230824
  19. LEVOTHYROXINE [Concomitant]
     Active Substance: LEVOTHYROXINE
     Indication: Hypothyroidism
     Dosage: 112 (NO UNIT DOSE)
     Route: 048
     Dates: start: 20230824
  20. OZEMPIC [Concomitant]
     Active Substance: SEMAGLUTIDE
     Indication: Type 2 diabetes mellitus
     Dosage: 0.25 (NO UNIT DOSE)
     Route: 058
     Dates: start: 20230824
  21. AUGMENTIN [Concomitant]
     Active Substance: AMOXICILLIN\CLAVULANATE POTASSIUM
     Indication: Upper respiratory tract infection
     Route: 048
     Dates: start: 20230906, end: 20230915
  22. PENTAMIDINE [Concomitant]
     Active Substance: PENTAMIDINE
     Indication: Antifungal prophylaxis
     Route: 042
     Dates: start: 20230906, end: 20230906
  23. PENTAMIDINE [Concomitant]
     Active Substance: PENTAMIDINE
     Dosage: 300
     Route: 042
     Dates: start: 20231004, end: 20231004
  24. PRIVIGEN [Concomitant]
     Active Substance: HUMAN IMMUNOGLOBULIN G
     Indication: Prophylaxis
     Route: 042
     Dates: start: 20230906, end: 20230906
  25. PRIVIGEN [Concomitant]
     Active Substance: HUMAN IMMUNOGLOBULIN G
     Indication: Prophylaxis
     Dosage: 20
     Route: 042
     Dates: start: 20231004, end: 20231004
  26. SODIUM CHLORIDE [Concomitant]
     Active Substance: SODIUM CHLORIDE
     Indication: Blood creatinine increased
     Dosage: 1000
     Route: 042
     Dates: start: 20231004, end: 20231004
  27. KEFLEX [Concomitant]
     Active Substance: CEPHALEXIN
     Indication: Wound infection
     Dosage: 500
     Route: 048
     Dates: start: 20231009, end: 20231015

REACTIONS (1)
  - Diabetes mellitus inadequate control [Not Recovered/Not Resolved]

NARRATIVE: CASE EVENT DATE: 20231003
